FAERS Safety Report 23142993 (Version 1)
Quarter: 2023Q4

REPORT INFORMATION
  Report Type: Spontaneous
  Country: US (occurrence: None)
  Receive Date: 20231102
  Receipt Date: 20231102
  Transmission Date: 20240109
  Serious: Yes (Disabling)
  Sender: FDA-Public Use
  Company Number: None

PATIENT
  Age: 60 Year
  Sex: Female
  Weight: 59.85 kg

DRUGS (4)
  1. VRAYLAR [Suspect]
     Active Substance: CARIPRAZINE
     Indication: Bipolar I disorder
     Dosage: OTHER QUANTITY : 30 CAPSULE(S);?FREQUENCY : DAILY;?
     Route: 048
     Dates: start: 20230621, end: 20231009
  2. LITHIUM [Concomitant]
     Active Substance: LITHIUM
  3. OLANZAPINE [Concomitant]
     Active Substance: OLANZAPINE
  4. SEROQUEL [Concomitant]
     Active Substance: QUETIAPINE FUMARATE

REACTIONS (6)
  - Depression [None]
  - Insomnia [None]
  - Therapy cessation [None]
  - Drug resistance [None]
  - Decreased activity [None]
  - Initial insomnia [None]

NARRATIVE: CASE EVENT DATE: 20231008
